FAERS Safety Report 6917676-7 (Version None)
Quarter: 2010Q3

REPORT INFORMATION
  Report Type: 
  Country: None (occurrence: None)
  Receive Date: 20100810
  Receipt Date: 20100802
  Transmission Date: 20110219
  Serious: Yes (Hospitalization)
  Sender: FDA-Public Use
  Company Number: JP-ELI_LILLY_AND_COMPANY-JP201007000010

PATIENT
  Sex: Male
  Weight: 65.5 kg

DRUGS (12)
  1. ALIMTA [Suspect]
     Indication: NON-SMALL CELL LUNG CANCER RECURRENT
     Dosage: 750 MG, OTHER
     Route: 042
     Dates: start: 20091126
  2. PANVITAN [Concomitant]
     Dosage: 1 G, DAILY (1/D)
     Route: 048
  3. HYDROXOCOBALAMINE [Concomitant]
     Dates: start: 20091116, end: 20100521
  4. FLUITRAN [Concomitant]
     Dosage: 2 MG, DAILY (1/D)
     Route: 048
  5. AZELASTINE HCL [Concomitant]
     Dosage: 16 MG, DAILY (1/D)
     Route: 048
  6. TENORMIN [Concomitant]
     Dosage: 25 MG, DAILY (1/D)
     Route: 048
  7. MICARDIS [Concomitant]
     Dosage: 40 MG, DAILY (1/D)
     Route: 048
  8. ZYLORIC [Concomitant]
     Dosage: 200 MG, 2/D
     Route: 048
  9. PROTECADIN [Concomitant]
     Dosage: 10 MG, 2/D
     Route: 048
  10. HIRNAMIN [Concomitant]
     Dosage: 5 MG, DAILY (1/D)
     Route: 048
  11. EBASTINE [Concomitant]
     Dosage: 5 MG, DAILY (1/D)
     Route: 048
  12. DIART [Concomitant]
     Dosage: 30 MG, DAILY (1/D)
     Route: 048

REACTIONS (6)
  - CHILLS [None]
  - FATIGUE [None]
  - LIVER FUNCTION TEST ABNORMAL [None]
  - PLATELET COUNT DECREASED [None]
  - PYREXIA [None]
  - WHITE BLOOD CELL COUNT DECREASED [None]
